FAERS Safety Report 7994789-2 (Version None)
Quarter: 2011Q4

REPORT INFORMATION
  Report Type: 
  Country: None (occurrence: None)
  Receive Date: 20111220
  Receipt Date: 20111214
  Transmission Date: 20120403
  Serious: Yes (Other)
  Sender: FDA-Public Use
  Company Number: US-SANOFI-AVENTIS-2010SA068490

PATIENT
  Age: 76 Year
  Sex: Female

DRUGS (9)
  1. PLAVIX [Suspect]
     Route: 065
     Dates: start: 20030501, end: 20030901
  2. PLAVIX [Suspect]
     Dates: start: 20110815
  3. PLAVIX [Suspect]
     Indication: CORONARY ARTERY DISEASE
     Route: 065
     Dates: start: 20030501, end: 20030901
  4. WARFARIN SODIUM [Concomitant]
  5. ASPIRIN [Suspect]
     Dates: start: 20111101
  6. ASPIRIN [Suspect]
     Route: 065
     Dates: start: 20030501
  7. PLAVIX [Suspect]
     Dates: start: 20110815
  8. ASPIRIN [Suspect]
     Dates: start: 20111101
  9. ASPIRIN [Suspect]
     Indication: CORONARY ARTERY DISEASE
     Route: 065
     Dates: start: 20030501

REACTIONS (6)
  - COLITIS ULCERATIVE [None]
  - OEDEMA PERIPHERAL [None]
  - GASTROINTESTINAL HAEMORRHAGE [None]
  - DYSPNOEA [None]
  - FAECES DISCOLOURED [None]
  - RECTAL HAEMORRHAGE [None]
